FAERS Safety Report 20707379 (Version 1)
Quarter: 2022Q2

REPORT INFORMATION
  Report Type: Spontaneous
  Country: DE (occurrence: DE)
  Receive Date: 20220413
  Receipt Date: 20220413
  Transmission Date: 20220720
  Serious: Yes (Other)
  Sender: FDA-Public Use
  Company Number: DE-BoehringerIngelheim-2022-BI-159082

PATIENT
  Age: 71 Year
  Sex: Female
  Weight: 65 kg

DRUGS (3)
  1. GILOTRIF [Suspect]
     Active Substance: AFATINIB
     Indication: Bronchial carcinoma
     Dosage: WITH PAUSES AT THE WEEKENDS
     Dates: start: 20211216, end: 20220111
  2. GILOTRIF [Suspect]
     Active Substance: AFATINIB
     Dates: start: 20220118
  3. Levetiracatam [Concomitant]
     Indication: Metastases to central nervous system
     Route: 048
     Dates: start: 20211101, end: 20220211

REACTIONS (4)
  - Diarrhoea [Not Recovered/Not Resolved]
  - Ageusia [Not Recovered/Not Resolved]
  - Dry skin [Not Recovered/Not Resolved]
  - Dry mouth [Not Recovered/Not Resolved]

NARRATIVE: CASE EVENT DATE: 20220107
